FAERS Safety Report 7432787-8 (Version None)
Quarter: 2011Q2

REPORT INFORMATION
  Report Type: 
  Country: None (occurrence: None)
  Receive Date: 20110415
  Receipt Date: 20110331
  Transmission Date: 20111010
  Serious: Yes (Other)
  Sender: FDA-Public Use
  Company Number: AUR-APL-2011-01248

PATIENT
  Age: 75 Year
  Sex: Male

DRUGS (18)
  1. ZOLOFT [Suspect]
  2. CYMBALTA [Suspect]
  3. PAXIL [Suspect]
  4. MIRTAZAPINE [Suspect]
  5. LEXAPRO [Suspect]
  6. EFFEXOR XR [Suspect]
     Indication: DEPRESSION
     Dosage: 75MG-DAILY-ORAL
     Route: 048
     Dates: start: 19930101
  7. SEROQUEL [Suspect]
  8. PROZAC [Suspect]
  9. DEPAKOTE [Suspect]
  10. PAROXETINE HCL [Suspect]
  11. PRISTIQ [Suspect]
     Indication: DEPRESSION
     Dosage: 50MG-DAILY-ORAL ; 0.5TABLET-ORAL
     Route: 048
     Dates: start: 20090301, end: 20090323
  12. PRISTIQ [Suspect]
     Indication: DEPRESSION
     Dosage: 50MG-DAILY-ORAL ; 0.5TABLET-ORAL
     Route: 048
     Dates: start: 20090316, end: 20090301
  13. ONE-A-DAY [Concomitant]
  14. FISH OIL, HYDROGENATED [Concomitant]
  15. WELLBUTRIN [Suspect]
  16. ZYPREXA [Suspect]
  17. DOXEPIN [Suspect]
  18. TRAZODONE HCL [Suspect]

REACTIONS (13)
  - DRUG INEFFECTIVE [None]
  - CONSTIPATION [None]
  - SUICIDE ATTEMPT [None]
  - DIARRHOEA [None]
  - DRY MOUTH [None]
  - MUSCLE TWITCHING [None]
  - DIVERTICULITIS [None]
  - TREMOR [None]
  - DEPRESSION [None]
  - DECREASED APPETITE [None]
  - AGEUSIA [None]
  - NIGHTMARE [None]
  - SUICIDAL IDEATION [None]
